FAERS Safety Report 6306420-2 (Version None)
Quarter: 2009Q3

REPORT INFORMATION
  Report Type: 
  Country: None (occurrence: None)
  Receive Date: 20090812
  Receipt Date: 20090803
  Transmission Date: 20100115
  Serious: Yes (Hospitalization, Other)
  Sender: FDA-Public Use
  Company Number: US-ELI_LILLY_AND_COMPANY-US200908000615

PATIENT
  Sex: Male

DRUGS (6)
  1. FORTEO [Suspect]
     Dates: start: 20090301
  2. CALCIUM CARBONATE W/VITAMIN D NOS [Concomitant]
     Dosage: 600 MG, 2/D
  3. PYRIDOSTIGMINE BROMIDE [Concomitant]
     Dosage: 60 MG, 3/D
  4. METOPROLOL                         /00376901/ [Concomitant]
     Dosage: UNK, DAILY (1/D)
  5. CYCLOSPORINE [Concomitant]
     Dosage: 100 MG, 2/D
  6. PREDNISONE                         /00044701/ [Concomitant]

REACTIONS (4)
  - CHEST TUBE INSERTION [None]
  - DYSPNOEA [None]
  - PROCEDURAL PAIN [None]
  - THYMECTOMY [None]
